FAERS Safety Report 22821861 (Version 2)
Quarter: 2024Q1

REPORT INFORMATION
  Report Type: Report from Study
  Country: CA (occurrence: CA)
  Receive Date: 20230814
  Receipt Date: 20240311
  Transmission Date: 20240410
  Serious: Yes (Hospitalization)
  Sender: FDA-Public Use
  Company Number: CA-ABBVIE-5365183

PATIENT
  Sex: Male

DRUGS (1)
  1. SKYRIZI [Suspect]
     Active Substance: RISANKIZUMAB-RZAA
     Indication: Crohn^s disease
     Dosage: LAST ADMIN DATE-2023
     Route: 058
     Dates: start: 20230124

REACTIONS (7)
  - Gastrointestinal obstruction [Unknown]
  - Crohn^s disease [Unknown]
  - Device issue [Recovered/Resolved]
  - Device issue [Unknown]
  - Product dispensing error [Unknown]
  - Malaise [Unknown]
  - Adhesion [Unknown]

NARRATIVE: CASE EVENT DATE: 20230101
